FAERS Safety Report 8390524-7 (Version None)
Quarter: 2012Q2

REPORT INFORMATION
  Report Type: 
  Country: None (occurrence: None)
  Receive Date: 20120529
  Receipt Date: 20120522
  Transmission Date: 20120825
  Serious: Yes (Hospitalization, Other)
  Sender: FDA-Public Use
  Company Number: FR-PFIZER INC-2012123107

PATIENT
  Age: 81 Year
  Sex: Female

DRUGS (10)
  1. LASIX [Concomitant]
     Indication: HYPERTENSION
     Dosage: 40 MG, 1X/DAY
     Route: 048
  2. PANTOPRAZOLE [Concomitant]
     Dosage: 20 MG, 1X/DAY
     Route: 048
  3. XANAX [Concomitant]
     Dosage: 0.25 MG, 2X/DAY
     Route: 048
  4. BISOPROLOL FUMARATE [Concomitant]
     Dosage: 10 MG, UNK
     Route: 048
  5. NICARDIPINE HYDROCHLORIDE [Concomitant]
     Indication: HYPERTENSION
     Dosage: 50 MG, 1X/DAY
     Route: 048
  6. TORISEL [Suspect]
     Dosage: UNK
     Dates: start: 20120310
  7. SIMVASTATIN [Concomitant]
     Indication: DYSLIPIDAEMIA
     Dosage: 20 MG, 1X/DAY
     Route: 048
     Dates: start: 20111101
  8. TORISEL [Suspect]
     Indication: RENAL CANCER RECURRENT
     Dosage: 20 MG, UNK
     Route: 042
     Dates: start: 20111124, end: 20120103
  9. ESCITALOPRAM [Concomitant]
     Dosage: 5 MG, 1X/DAY
     Route: 048
  10. PREDNISOLONE [Concomitant]
     Dosage: 20 MG, 1X/DAY
     Route: 048
     Dates: end: 20111216

REACTIONS (2)
  - LUNG DISORDER [None]
  - LUNG INFECTION [None]
